FAERS Safety Report 6819827-1 (Version None)
Quarter: 2010Q3

REPORT INFORMATION
  Report Type: 
  Country: None (occurrence: None)
  Receive Date: 20100707
  Receipt Date: 20100702
  Transmission Date: 20110219
  Serious: Yes (Death, Hospitalization, Other)
  Sender: FDA-Public Use
  Company Number: PHHY2010JP18342

PATIENT
  Age: 67 Year
  Sex: Female
  Weight: 58.5 kg

DRUGS (14)
  1. GLEEVEC [Suspect]
     Indication: CHRONIC MYELOID LEUKAEMIA
     Dosage: 200 MG/DAY
     Route: 048
     Dates: start: 20030201, end: 20031201
  2. GLEEVEC [Suspect]
     Dosage: 300 MG/DAY
     Route: 048
     Dates: start: 20040601, end: 20050901
  3. GLEEVEC [Suspect]
     Dosage: 300 MG/DAY
     Route: 048
     Dates: start: 20070901
  4. DOXORUBICIN HCL [Concomitant]
     Dosage: 20 MG/M2, UNK
  5. VINCRISTINE [Concomitant]
     Dosage: 1.4 MG/M2, UNK
  6. ARA-C [Concomitant]
     Dosage: 100~200 MG
  7. ARA-C [Concomitant]
     Dosage: 1.5 G, BID
  8. DAUNORUBICIN HCL [Concomitant]
     Dosage: 45 MG/DAY~ 60 MG/DAY
  9. IDARUBICIN HCL [Concomitant]
     Dosage: 10 MG/DAY
  10. VINDESINE [Concomitant]
     Dosage: 2 MG/M2, UNK
  11. PREDNISOLONE [Concomitant]
     Dosage: 40 MG/M2, UNK
  12. PREDNISOLONE [Concomitant]
     Dosage: 20 MG/DAY~ 60 MG/DAY
  13. BEHENONYL-ARABINOFURANOSYL CYTOSINE [Concomitant]
     Dosage: 150~200 MG/M2
  14. MERCAPTOPURINE [Concomitant]
     Dosage: 60 MG DAILY
     Route: 048

REACTIONS (8)
  - BLAST CRISIS IN MYELOGENOUS LEUKAEMIA [None]
  - DRUG INEFFECTIVE [None]
  - DRUG RESISTANCE [None]
  - ERYTHEMA MULTIFORME [None]
  - MYELOBLAST COUNT INCREASED [None]
  - PANCYTOPENIA [None]
  - PLATELET COUNT DECREASED [None]
  - RASH [None]
